FAERS Safety Report 21175479 (Version 1)
Quarter: 2022Q3

REPORT INFORMATION
  Report Type: Spontaneous
  Country: GB (occurrence: GB)
  Receive Date: 20220805
  Receipt Date: 20220805
  Transmission Date: 20221027
  Serious: Yes (Other)
  Sender: FDA-Public Use
  Company Number: GB-MHRA-MED-202207220106143180-ZNTLV

PATIENT
  Age: 51 Year
  Sex: Female

DRUGS (2)
  1. TERBINAFINE [Suspect]
     Active Substance: TERBINAFINE
     Indication: Tinea pedis
     Dosage: 250 MILLIGRAM, DAILY
     Route: 065
     Dates: start: 20220316
  2. TOLNAFTATE [Suspect]
     Active Substance: TOLNAFTATE
     Indication: Tinea pedis
     Dosage: 250 MILLIGRAM, ONCE A DAY
     Route: 065
     Dates: start: 20220316

REACTIONS (2)
  - Erythema [Not Recovered/Not Resolved]
  - Burning sensation [Not Recovered/Not Resolved]

NARRATIVE: CASE EVENT DATE: 20220401
